FAERS Safety Report 7917917-3 (Version None)
Quarter: 2011Q4

REPORT INFORMATION
  Report Type: 
  Country: None (occurrence: None)
  Receive Date: 20111116
  Receipt Date: 20111111
  Transmission Date: 20120403
  Serious: Yes (Other)
  Sender: FDA-Public Use
  Company Number: PHHY2011DE77287

PATIENT
  Sex: Female

DRUGS (2)
  1. TAMOXIFEN CITRATE [Concomitant]
     Indication: BREAST CANCER
     Dosage: UNK UKN, UNK
     Route: 065
  2. ZOMETA [Suspect]
     Indication: BREAST CANCER
     Dosage: 4 MG/ 5 ML EVERY 6 MONTHS
     Dates: start: 20080301

REACTIONS (1)
  - OSTEONECROSIS OF JAW [None]
